FAERS Safety Report 12704988 (Version 1)
Quarter: 2016Q3

REPORT INFORMATION
  Report Type: Spontaneous
  Country: US (occurrence: None)
  Receive Date: 20160831
  Receipt Date: 20160831
  Transmission Date: 20161109
  Serious: Yes (Death, Life-Threatening, Other)
  Sender: FDA-Public Use
  Company Number: None

PATIENT
  Age: 34 Year
  Sex: Female

DRUGS (4)
  1. ARMOUR THYROID [Concomitant]
     Active Substance: THYROID, PORCINE
  2. NPLATE [Suspect]
     Active Substance: ROMIPLOSTIM
     Indication: IMMUNE THROMBOCYTOPENIC PURPURA
  3. OCP [Concomitant]
  4. APAP [Concomitant]
     Active Substance: ACETAMINOPHEN

REACTIONS (7)
  - Renal failure [None]
  - Intracardiac thrombus [None]
  - Atypical pneumonia [None]
  - Dyspnoea [None]
  - Cerebral thrombosis [None]
  - Ischaemic stroke [None]
  - Apallic syndrome [None]

NARRATIVE: CASE EVENT DATE: 20160220
